FAERS Safety Report 21874695 (Version 1)
Quarter: 2023Q1

REPORT INFORMATION
  Report Type: Spontaneous
  Country: US (occurrence: None)
  Receive Date: 20230117
  Receipt Date: 20230117
  Transmission Date: 20230417
  Serious: Yes (Hospitalization)
  Sender: FDA-Public Use
  Company Number: 2023A003447

PATIENT
  Age: 25010 Day
  Sex: Male

DRUGS (5)
  1. SYMBICORT [Suspect]
     Active Substance: BUDESONIDE\FORMOTEROL FUMARATE DIHYDRATE
     Indication: Chronic obstructive pulmonary disease
     Dosage: 160 MCG, (UNKNOWN INHALATION QUANTITY), 2 INHALATIONS 2 TIMES A DAY
     Route: 055
  2. SYMBICORT [Suspect]
     Active Substance: BUDESONIDE\FORMOTEROL FUMARATE DIHYDRATE
     Indication: Emphysema
     Dosage: 160 MCG, (UNKNOWN INHALATION QUANTITY), 2 INHALATIONS 2 TIMES A DAY
     Route: 055
  3. ALBUTEROL [Suspect]
     Active Substance: ALBUTEROL
  4. COMBIVENT [Suspect]
     Active Substance: ALBUTEROL SULFATE\IPRATROPIUM BROMIDE
  5. SPIRIVA [Suspect]
     Active Substance: TIOTROPIUM BROMIDE MONOHYDRATE

REACTIONS (4)
  - Pneumonia streptococcal [Recovering/Resolving]
  - Contusion [Unknown]
  - Heart rate irregular [Unknown]
  - Dysphonia [Unknown]

NARRATIVE: CASE EVENT DATE: 20220612
